FAERS Safety Report 7952895-2 (Version None)
Quarter: 2011Q4

REPORT INFORMATION
  Report Type: 
  Country: None (occurrence: None)
  Receive Date: 20111201
  Receipt Date: 20111121
  Transmission Date: 20120403
  Serious: Yes (Hospitalization)
  Sender: FDA-Public Use
  Company Number: AR-GENZYME-CERZ-1002322

PATIENT
  Age: 11 Year
  Sex: Male
  Weight: 32 kg

DRUGS (1)
  1. CEREZYME [Suspect]
     Indication: GAUCHER'S DISEASE
     Dosage: 60 U, Q2W
     Route: 042

REACTIONS (2)
  - CELLULITIS [None]
  - EXCORIATION [None]
